FAERS Safety Report 12930180 (Version 1)
Quarter: 2016Q4

REPORT INFORMATION
  Report Type: Spontaneous
  Country: US (occurrence: US)
  Receive Date: 20161111
  Receipt Date: 20161111
  Transmission Date: 20170207
  Serious: Yes (Other)
  Sender: FDA-Public Use
  Company Number: None

PATIENT
  Age: 1 Year
  Sex: Female
  Weight: 8.1 kg

DRUGS (4)
  1. ZARBEES IMMUNITY BOOSTER WITH VITAMINS [Concomitant]
  2. HYLANDS CALMING TABLETS [Concomitant]
  3. BABY TEETHING (HYLAND HOMEOPATHIC) [Suspect]
     Active Substance: HOMEOPATHICS
     Indication: TEETHING
     Dosage: ?          QUANTITY:3 TABLET(S);OTHER ROUTE:ORALLY DISSOLVED?
     Route: 048
     Dates: start: 20160801, end: 20161029
  4. HYLAND^S COLD TABLETS [Concomitant]

REACTIONS (3)
  - Irritability [None]
  - Somnolence [None]
  - Diarrhoea [None]

NARRATIVE: CASE EVENT DATE: 20161029
